FAERS Safety Report 10347452 (Version 1)
Quarter: 2014Q3

REPORT INFORMATION
  Report Type: Spontaneous
  Country: GB (occurrence: GB)
  Receive Date: 20140729
  Receipt Date: 20140729
  Transmission Date: 20150326
  Serious: Yes (Other)
  Sender: FDA-Public Use
  Company Number: GB-TEVA-495294ISR

PATIENT
  Age: 83 Year
  Sex: Female
  Weight: 54 kg

DRUGS (8)
  1. XARELTO [Suspect]
     Active Substance: RIVAROXABAN
     Indication: PULMONARY EMBOLISM
     Route: 048
     Dates: start: 20140618, end: 20140621
  2. SIMVASTATIN. [Concomitant]
     Active Substance: SIMVASTATIN
     Indication: MYOCARDIAL ISCHAEMIA
     Dosage: PATIENT TAKING SIMVASTATIN LONG TERM.
     Route: 048
     Dates: end: 20140623
  3. VITAMIN B COMPLEX STRONG [Concomitant]
     Indication: NUTRITIONAL SUPPLEMENTATION
     Route: 048
     Dates: start: 20140609
  4. FOLIC ACID. [Concomitant]
     Active Substance: FOLIC ACID
     Indication: FOLATE DEFICIENCY
     Route: 048
     Dates: start: 20140609
  5. NITROFURANTOIN. [Suspect]
     Active Substance: NITROFURANTOIN
     Indication: URINARY TRACT INFECTION
     Route: 048
     Dates: start: 20140620, end: 20140624
  6. ASPIRIN. [Suspect]
     Active Substance: ASPIRIN
     Indication: MYOCARDIAL INFARCTION
     Dosage: PATIENT HAS BEEN TAKING ASPIRIN FOR SEVERAL YEARS.
     Route: 048
     Dates: end: 20140623
  7. FUROSEMIDE. [Concomitant]
     Active Substance: FUROSEMIDE
     Indication: LOCAL SWELLING
     Route: 048
     Dates: start: 20140609
  8. OMEPRAZOLE. [Concomitant]
     Active Substance: OMEPRAZOLE
     Dosage: PATIENT TAKING OMEPRAZOLE LONG TERM.
     Route: 048
     Dates: start: 20140623

REACTIONS (2)
  - Contusion [Recovering/Resolving]
  - Haematoma [Recovering/Resolving]

NARRATIVE: CASE EVENT DATE: 20140621
